FAERS Safety Report 17964374 (Version 1)
Quarter: 2020Q2

REPORT INFORMATION
  Report Type: Spontaneous
  Country: US (occurrence: US)
  Receive Date: 20200630
  Receipt Date: 20200630
  Transmission Date: 20200714
  Serious: Yes (Hospitalization, Other)
  Sender: FDA-Public Use
  Company Number: US-SAOL THERAPEUTICS-2020SAO00190

PATIENT
  Age: 43 Year
  Sex: Female

DRUGS (1)
  1. BACLOFEN. [Suspect]
     Active Substance: BACLOFEN
     Dosage: AN ENTIRE BOTTLE OF 10-MG TABLETS, ONCE
     Route: 048

REACTIONS (7)
  - Status epilepticus [Recovered/Resolved]
  - Coma [Recovered/Resolved]
  - Areflexia [Recovered/Resolved]
  - Myoclonus [Recovered/Resolved]
  - Subarachnoid haemorrhage [Recovered/Resolved]
  - Brain oedema [Recovered/Resolved]
  - Intentional overdose [Recovered/Resolved]
